FAERS Safety Report 8591094-0 (Version None)
Quarter: 2012Q3

REPORT INFORMATION
  Report Type: 
  Country: None (occurrence: None)
  Receive Date: 20120813
  Receipt Date: 20120806
  Transmission Date: 20120928
  Serious: Yes (Life-Threatening, Hospitalization, Other)
  Sender: FDA-Public Use
  Company Number: US-JNJFOC-20120709799

PATIENT
  Sex: Female
  Weight: 58.06 kg

DRUGS (4)
  1. ZYRTEC [Concomitant]
     Indication: PREMEDICATION
     Route: 065
  2. REMICADE [Suspect]
     Indication: PSORIATIC ARTHROPATHY
     Route: 042
  3. TYLENOL [Concomitant]
     Indication: PREMEDICATION
     Route: 065
  4. TRANDATE [Concomitant]
     Indication: HYPERTENSION
     Route: 065

REACTIONS (3)
  - MATERNAL EXPOSURE DURING PREGNANCY [None]
  - PREMATURE DELIVERY [None]
  - PRE-ECLAMPSIA [None]
